FAERS Safety Report 12418773 (Version 1)
Quarter: 2016Q2

REPORT INFORMATION
  Report Type: Spontaneous
  Country: US (occurrence: US)
  Receive Date: 20160531
  Receipt Date: 20160531
  Transmission Date: 20160815
  Serious: Yes (Hospitalization)
  Sender: FDA-Public Use
  Company Number: US-TESARO INC.-TS50-00068-2016USA

PATIENT
  Age: 63 Year
  Sex: Male

DRUGS (2)
  1. VARUBI [Suspect]
     Active Substance: ROLAPITANT
     Indication: VOMITING
  2. VARUBI [Suspect]
     Active Substance: ROLAPITANT
     Indication: NAUSEA
     Route: 048
     Dates: start: 20160504, end: 20160504

REACTIONS (3)
  - White blood cell count increased [Unknown]
  - Hyperhidrosis [Unknown]
  - Dizziness [Unknown]

NARRATIVE: CASE EVENT DATE: 201605
